FAERS Safety Report 5644865-4 (Version None)
Quarter: 2008Q1

REPORT INFORMATION
  Report Type: 
  Country: None (occurrence: None)
  Receive Date: 20080229
  Receipt Date: 20070924
  Transmission Date: 20080703
  Serious: No
  Sender: FDA-Public Use
  Company Number: A0683839A

PATIENT
  Age: 64 Year
  Sex: Female

DRUGS (7)
  1. VALTREX [Suspect]
     Indication: GENITAL HERPES
     Dosage: 1000MG PER DAY
     Route: 048
     Dates: start: 20070905
  2. NEXIUM [Concomitant]
  3. RESTORIL [Concomitant]
  4. CLARITIN [Concomitant]
  5. ASTELIN [Concomitant]
  6. NASONEX [Concomitant]
  7. MULTI-VITAMIN [Concomitant]

REACTIONS (3)
  - AGITATION [None]
  - BLOOD PRESSURE INCREASED [None]
  - PALPITATIONS [None]
